FAERS Safety Report 11182545 (Version 2)
Quarter: 2015Q3

REPORT INFORMATION
  Report Type: Spontaneous
  Country: US (occurrence: US)
  Receive Date: 20150611
  Receipt Date: 20150707
  Transmission Date: 20151125
  Serious: Yes (Hospitalization)
  Sender: FDA-Public Use
  Company Number: US-ABBVIE-15P-163-1404926-00

PATIENT
  Sex: Male
  Weight: 90.8 kg

DRUGS (6)
  1. SYNTHROID [Concomitant]
     Active Substance: LEVOTHYROXINE SODIUM
     Indication: PRODUCT USED FOR UNKNOWN INDICATION
  2. ANDROGEL [Suspect]
     Active Substance: TESTOSTERONE
     Indication: ADRENAL INSUFFICIENCY
     Dosage: 4 PUMPS PER DAY
     Route: 061
     Dates: start: 2013, end: 201505
  3. XARELTO [Concomitant]
     Active Substance: RIVAROXABAN
     Indication: ATRIAL FIBRILLATION
     Route: 065
  4. PREDNISONE. [Concomitant]
     Active Substance: PREDNISONE
     Indication: PRODUCT USED FOR UNKNOWN INDICATION
     Route: 065
  5. LIPITOR [Concomitant]
     Active Substance: ATORVASTATIN CALCIUM
     Indication: BLOOD CHOLESTEROL INCREASED
     Route: 048
  6. METOPROLOL [Concomitant]
     Active Substance: METOPROLOL
     Indication: ATRIAL FIBRILLATION
     Route: 065

REACTIONS (8)
  - Alcoholism [Recovered/Resolved]
  - Alcohol abuse [Recovered/Resolved]
  - Product label issue [Not Recovered/Not Resolved]
  - Alcohol abuse [Recovered/Resolved]
  - Discomfort [Unknown]
  - Irritability [Unknown]
  - Mood altered [Unknown]
  - Alcoholism [Recovered/Resolved]

NARRATIVE: CASE EVENT DATE: 2014
